FAERS Safety Report 11911571 (Version 3)
Quarter: 2017Q1

REPORT INFORMATION
  Report Type: Report from Study
  Country: FR (occurrence: FR)
  Receive Date: 20160112
  Receipt Date: 20170309
  Transmission Date: 20170428
  Serious: Yes (Hospitalization, Other)
  Sender: FDA-Public Use
  Company Number: PHHY2015FR009389

PATIENT
  Age: 58 Year
  Sex: Male
  Weight: 86 kg

DRUGS (19)
  1. CERTICAN [Suspect]
     Active Substance: EVEROLIMUS
     Indication: IMMUNOSUPPRESSANT DRUG THERAPY
     Dosage: 6 MG, QD
     Route: 048
     Dates: start: 20150218, end: 20150927
  2. MYFORTIC [Suspect]
     Active Substance: MYCOPHENOLATE SODIUM
     Indication: LIVER TRANSPLANT
     Dosage: 1440 MG, QD
     Route: 048
     Dates: start: 20131118, end: 20150902
  3. CORTANCYL [Suspect]
     Active Substance: PREDNISONE
     Indication: IMMUNOSUPPRESSANT DRUG THERAPY
     Dosage: 3 MG, QD
     Route: 065
     Dates: start: 20140505, end: 20140520
  4. CERTICAN [Suspect]
     Active Substance: EVEROLIMUS
     Indication: PROPHYLAXIS AGAINST TRANSPLANT REJECTION
     Dosage: 7 MG, QD
     Route: 048
     Dates: start: 20150217, end: 20150217
  5. CERTICAN [Suspect]
     Active Substance: EVEROLIMUS
     Dosage: 6 MG, QD
     Route: 048
     Dates: start: 20151029, end: 20160324
  6. MYFORTIC [Suspect]
     Active Substance: MYCOPHENOLATE SODIUM
     Indication: IMMUNOSUPPRESSANT DRUG THERAPY
     Dosage: 720 MG, QD
     Route: 048
     Dates: start: 20150903, end: 20150927
  7. RENITEC                                 /NET/ [Suspect]
     Active Substance: ENALAPRIL MALEATE
     Indication: PRODUCT USED FOR UNKNOWN INDICATION
     Route: 065
  8. PROGRAF [Concomitant]
     Active Substance: TACROLIMUS\TACROLIMUS ANHYDROUS
     Dosage: 5 MG, QD
     Route: 065
     Dates: start: 20160407, end: 20160706
  9. MYFORTIC [Suspect]
     Active Substance: MYCOPHENOLATE SODIUM
     Dosage: 720 MG, QD
     Route: 048
     Dates: start: 20151029
  10. PROGRAF [Concomitant]
     Active Substance: TACROLIMUS\TACROLIMUS ANHYDROUS
     Dosage: 2.5 MG, QD
     Route: 065
     Dates: start: 20160920, end: 20161128
  11. CERTICAN [Suspect]
     Active Substance: EVEROLIMUS
     Dosage: 3 MG, QD
     Route: 048
     Dates: start: 20160707, end: 20170110
  12. CERTICAN [Suspect]
     Active Substance: EVEROLIMUS
     Dosage: 2.5 MG, QD
     Route: 048
     Dates: start: 20170111
  13. PROGRAF [Concomitant]
     Active Substance: TACROLIMUS\TACROLIMUS ANHYDROUS
     Indication: IMMUNOSUPPRESSANT DRUG THERAPY
     Dosage: 3 MG, QD
     Route: 065
     Dates: start: 20160325, end: 20160406
  14. PROGRAF [Concomitant]
     Active Substance: TACROLIMUS\TACROLIMUS ANHYDROUS
     Dosage: 2 MG, QD
     Route: 065
     Dates: start: 20161129
  15. CERTICAN [Suspect]
     Active Substance: EVEROLIMUS
     Indication: RENAL TRANSPLANT
     Dosage: 8 MG, QD
     Route: 048
     Dates: start: 20140117, end: 20150216
  16. PROGRAF [Concomitant]
     Active Substance: TACROLIMUS\TACROLIMUS ANHYDROUS
     Dosage: 3 MG, QD
     Route: 065
     Dates: start: 20160707, end: 20160919
  17. CERTICAN [Suspect]
     Active Substance: EVEROLIMUS
     Dosage: 3 MG, QD
     Route: 048
     Dates: start: 20160325, end: 20160407
  18. CORTANCYL [Suspect]
     Active Substance: PREDNISONE
     Dosage: 2 MG, QD
     Route: 065
     Dates: start: 20140521, end: 20140611
  19. CORTANCYL [Suspect]
     Active Substance: PREDNISONE
     Dosage: 1 MG, QD
     Route: 065
     Dates: start: 20140612, end: 20140712

REACTIONS (9)
  - Lung infection [Unknown]
  - Lung disorder [Recovering/Resolving]
  - Tongue oedema [Recovered/Resolved]
  - Pyrexia [Recovered/Resolved]
  - Bronchitis [Recovered/Resolved]
  - Bronchitis [Not Recovered/Not Resolved]
  - Haemoptysis [Recovered/Resolved]
  - Cough [Recovered/Resolved]
  - Pyrexia [Unknown]

NARRATIVE: CASE EVENT DATE: 20141106
